FAERS Safety Report 6358063-2 (Version None)
Quarter: 2009Q3

REPORT INFORMATION
  Report Type: 
  Country: None (occurrence: None)
  Receive Date: 20090916
  Receipt Date: 20090911
  Transmission Date: 20100115
  Serious: Yes (Hospitalization)
  Sender: FDA-Public Use
  Company Number: A0807300A

PATIENT
  Age: 70 Year
  Sex: Female
  Weight: 97 kg

DRUGS (7)
  1. ONDANSETRON [Suspect]
     Route: 042
     Dates: start: 20090904
  2. FLUOXETINE [Concomitant]
     Indication: DEPRESSION
     Route: 048
     Dates: start: 20070101
  3. ROSUVASTATIN CALCIUM [Concomitant]
     Route: 048
     Dates: start: 20070101
  4. METOPROLOL TARTRATE [Concomitant]
     Indication: HYPERTENSION
     Route: 048
     Dates: start: 19870101
  5. AMLODIPINE [Concomitant]
     Indication: HYPERTENSION
     Route: 048
     Dates: start: 20030101
  6. LISINOPRIL [Concomitant]
     Indication: HYPERTENSION
     Route: 048
     Dates: start: 19990101
  7. HYDROCHLOROTHIAZIDE [Concomitant]
     Indication: HYPERTENSION
     Route: 048
     Dates: start: 19890101

REACTIONS (1)
  - EXTRASYSTOLES [None]
